FAERS Safety Report 5706284-1 (Version None)
Quarter: 2008Q2

REPORT INFORMATION
  Report Type: 
  Country: None (occurrence: None)
  Receive Date: 20080328
  Receipt Date: 20071108
  Transmission Date: 20081010
  Serious: Yes (Other)
  Sender: FDA-Public Use
  Company Number: US-WYE-H01206007

PATIENT
  Age: 75 Year
  Sex: Female
  Weight: 61.74 kg

DRUGS (3)
  1. ALAVERT [Suspect]
     Indication: HYPERSENSITIVITY
     Dosage: 1 TABLET 1X PER 1 DAY, ORAL
     Route: 048
     Dates: start: 20071107, end: 20071108
  2. GABAPENTIN [Concomitant]
  3. LISINOPRIL [Concomitant]

REACTIONS (1)
  - POOR QUALITY SLEEP [None]
